FAERS Safety Report 11317765 (Version 2)
Quarter: 2015Q3

REPORT INFORMATION
  Report Type: Spontaneous
  Country: US (occurrence: US)
  Receive Date: 20150728
  Receipt Date: 20150801
  Transmission Date: 20151125
  Serious: Yes (Other)
  Sender: FDA-Public Use
  Company Number: US-TEVA-581446USA

PATIENT
  Age: 74 Year
  Sex: Female
  Weight: 89.89 kg

DRUGS (5)
  1. NUVIGIL [Suspect]
     Active Substance: ARMODAFINIL
     Route: 065
     Dates: start: 20150708, end: 20150717
  2. NAPROSYN [Concomitant]
     Active Substance: NAPROXEN
  3. ASPIRIN. [Concomitant]
     Active Substance: ASPIRIN
  4. CALCIUM [Concomitant]
     Active Substance: CALCIUM
  5. MULTIVITAMIN [Concomitant]
     Active Substance: VITAMINS

REACTIONS (7)
  - Psychomotor hyperactivity [Unknown]
  - Mental impairment [Unknown]
  - Adverse event [Unknown]
  - Nervousness [Unknown]
  - Impaired driving ability [Unknown]
  - Speech disorder [Unknown]
  - Fatigue [Unknown]

NARRATIVE: CASE EVENT DATE: 20150708
